FAERS Safety Report 11524278 (Version 1)
Quarter: 2015Q3

REPORT INFORMATION
  Report Type: Spontaneous
  Country: US (occurrence: US)
  Receive Date: 20150903
  Receipt Date: 20150903
  Transmission Date: 20151125
  Serious: No
  Sender: FDA-Public Use
  Company Number: US-ELI_LILLY_AND_COMPANY-US200906000046

PATIENT
  Sex: Female

DRUGS (3)
  1. HUMALOG MIX75/25 [Suspect]
     Active Substance: INSULIN LISPRO
     Dates: start: 2007
  2. INSULIN [Concomitant]
     Active Substance: INSULIN NOS
  3. NOVOLOG MIX 70/30 [Concomitant]
     Active Substance: INSULIN ASPART

REACTIONS (3)
  - Blister [Recovering/Resolving]
  - Blister [Recovering/Resolving]
  - Gluten sensitivity [Unknown]

NARRATIVE: CASE EVENT DATE: 2007
